FAERS Safety Report 6132508-5 (Version None)
Quarter: 2009Q1

REPORT INFORMATION
  Report Type: 
  Country: None (occurrence: None)
  Receive Date: 20090324
  Receipt Date: 20090316
  Transmission Date: 20090719
  Serious: Yes (Hospitalization)
  Sender: FDA-Public Use
  Company Number: TCI2009A00758

PATIENT
  Age: 87 Year
  Sex: Female

DRUGS (2)
  1. LANSOPRAZOLE [Suspect]
     Indication: GASTRIC ULCER HAEMORRHAGE
     Dosage: 30 MG (30 MG, 1 IN 1 D) PER ORAL
     Route: 048
     Dates: start: 20090223, end: 20090302
  2. NITRODERM TTS (GLYCERYL TRINITRATE) (POULTICE OR PATCH) [Concomitant]

REACTIONS (3)
  - DELIRIUM [None]
  - DISORIENTATION [None]
  - MEMORY IMPAIRMENT [None]
